FAERS Safety Report 12250611 (Version 9)
Quarter: 2018Q2

REPORT INFORMATION
  Report Type: Spontaneous
  Country: US (occurrence: US)
  Receive Date: 20160408
  Receipt Date: 20180529
  Transmission Date: 20180711
  Serious: Yes (Hospitalization, Other)
  Sender: FDA-Public Use
  Company Number: US-BIOGEN-2013BI006635

PATIENT
  Age: 66 Year
  Sex: Female

DRUGS (6)
  1. AVONEX [Suspect]
     Active Substance: INTERFERON BETA-1A
     Route: 030
     Dates: start: 20120925, end: 20160517
  2. AVONEX [Suspect]
     Active Substance: INTERFERON BETA-1A
     Route: 065
     Dates: start: 20120831, end: 20160517
  3. AVONEX [Suspect]
     Active Substance: INTERFERON BETA-1A
     Route: 030
     Dates: start: 201707
  4. AVONEX [Suspect]
     Active Substance: INTERFERON BETA-1A
     Indication: MULTIPLE SCLEROSIS
     Route: 030
     Dates: start: 20120925, end: 20160418
  5. AVONEX [Suspect]
     Active Substance: INTERFERON BETA-1A
     Route: 065
  6. AUGMENTIN [Concomitant]
     Active Substance: AMOXICILLIN\CLAVULANATE POTASSIUM
     Indication: PRODUCT USED FOR UNKNOWN INDICATION
     Route: 065

REACTIONS (54)
  - Nerve root compression [Recovered/Resolved]
  - Urinary tract infection [Recovered/Resolved]
  - Large intestinal obstruction [Not Recovered/Not Resolved]
  - Cognitive disorder [Unknown]
  - Pharyngeal disorder [Not Recovered/Not Resolved]
  - Mental impairment [Not Recovered/Not Resolved]
  - Multiple sclerosis relapse [Recovered/Resolved with Sequelae]
  - Feeling hot [Not Recovered/Not Resolved]
  - Gait disturbance [Not Recovered/Not Resolved]
  - Shoulder operation [Recovered/Resolved]
  - Hypoacusis [Not Recovered/Not Resolved]
  - Somnolence [Not Recovered/Not Resolved]
  - Pain in extremity [Unknown]
  - Decreased appetite [Not Recovered/Not Resolved]
  - Malaise [Recovered/Resolved]
  - Paralysis [Recovered/Resolved]
  - Weight decreased [Not Recovered/Not Resolved]
  - Procedural hypotension [Recovered/Resolved]
  - Loss of consciousness [Unknown]
  - Injection site haemorrhage [Recovered/Resolved]
  - Gait inability [Not Recovered/Not Resolved]
  - Fall [Recovered/Resolved]
  - Influenza like illness [Recovered/Resolved]
  - Drug ineffective [Not Recovered/Not Resolved]
  - Arthropathy [Recovered/Resolved]
  - Pneumonia [Recovered/Resolved]
  - Atrial fibrillation [Not Recovered/Not Resolved]
  - Memory impairment [Not Recovered/Not Resolved]
  - Procedural pain [Unknown]
  - Paraesthesia [Recovered/Resolved]
  - Seizure [Unknown]
  - Chronic obstructive pulmonary disease [Not Recovered/Not Resolved]
  - Skin cancer [Recovered/Resolved]
  - Upper limb fracture [Recovered/Resolved]
  - Septic shock [Recovered/Resolved]
  - Anaesthetic complication [Recovered/Resolved]
  - Dysstasia [Recovered/Resolved]
  - Disorientation [Recovered/Resolved]
  - Gastrointestinal disorder [Not Recovered/Not Resolved]
  - Vomiting [Not Recovered/Not Resolved]
  - Myelitis transverse [Unknown]
  - Unresponsive to stimuli [Unknown]
  - Thermal burn [Recovered/Resolved]
  - Multiple sclerosis [Recovered/Resolved]
  - Weight increased [Recovered/Resolved]
  - Amnesia [Not Recovered/Not Resolved]
  - Irritability [Not Recovered/Not Resolved]
  - Musculoskeletal stiffness [Not Recovered/Not Resolved]
  - Staphylococcal infection [Recovered/Resolved]
  - Cardiac arrest [Recovered/Resolved]
  - Muscular weakness [Recovered/Resolved]
  - Temperature intolerance [Recovered/Resolved]
  - Unwanted awareness during anaesthesia [Recovered/Resolved]
  - Gastrooesophageal reflux disease [Recovered/Resolved with Sequelae]

NARRATIVE: CASE EVENT DATE: 20121211
